FAERS Safety Report 21724062 (Version 1)
Quarter: 2022Q4

REPORT INFORMATION
  Report Type: Spontaneous
  Country: US (occurrence: US)
  Receive Date: 20221213
  Receipt Date: 20221213
  Transmission Date: 20230112
  Serious: Yes (Other)
  Sender: FDA-Public Use
  Company Number: US-ALLERGAN-2240175US

PATIENT
  Sex: Male

DRUGS (1)
  1. OZURDEX [Suspect]
     Active Substance: DEXAMETHASONE
     Indication: Retinal vein occlusion
     Dosage: 0.7 MG, SINGLE
     Route: 031

REACTIONS (4)
  - Retinal haemorrhage [Recovered/Resolved]
  - Product administered at inappropriate site [Recovered/Resolved]
  - Complication of device insertion [Recovered/Resolved]
  - Retinal injury [Recovered/Resolved]
